FAERS Safety Report 15642464 (Version 1)
Quarter: 2018Q4

REPORT INFORMATION
  Report Type: Spontaneous
  Country: GB (occurrence: GB)
  Receive Date: 20181121
  Receipt Date: 20181121
  Transmission Date: 20190205
  Serious: Yes (Other)
  Sender: FDA-Public Use
  Company Number: GB-009507513-1811GBR005575

PATIENT
  Age: 15 Year
  Sex: Female
  Weight: 69.9 kg

DRUGS (3)
  1. NEXPLANON [Suspect]
     Active Substance: ETONOGESTREL
     Indication: CONTRACEPTION
     Route: 059
     Dates: start: 20180911, end: 20181025
  2. CORTICOSTEROIDS (UNSPECIFIED) [Concomitant]
     Active Substance: UNSPECIFIED INGREDIENT
     Indication: ASTHMA
     Dosage: DAILY
     Route: 055
  3. COUGH, COLD, AND FLU THERAPIES (UNSPECIFIED) [Concomitant]
     Active Substance: UNSPECIFIED INGREDIENT
     Dosage: DAILY

REACTIONS (4)
  - Implant site swelling [Unknown]
  - Hypersensitivity [Unknown]
  - Implant site erythema [Unknown]
  - Medical device site granuloma [Unknown]

NARRATIVE: CASE EVENT DATE: 20181009
